FAERS Safety Report 6486448-2 (Version None)
Quarter: 2009Q4

REPORT INFORMATION
  Report Type: 
  Country: None (occurrence: None)
  Receive Date: 20091210
  Receipt Date: 20091204
  Transmission Date: 20100525
  Serious: Yes (Death, Hospitalization)
  Sender: FDA-Public Use
  Company Number: US-TEVA-205040USA

PATIENT
  Age: 61 Year
  Sex: Female

DRUGS (18)
  1. COPAXONE [Suspect]
     Indication: MULTIPLE SCLEROSIS
     Route: 058
  2. INTERFERON BETA [Suspect]
     Indication: MULTIPLE SCLEROSIS
     Route: 030
     Dates: start: 19960101
  3. ANTIBIOTICS [Concomitant]
  4. STEROIDS [Concomitant]
  5. PARACETAMOL [Concomitant]
     Indication: PAIN
     Dosage: Q. 4H. P.R.N.
     Route: 048
  6. ACETYLSALICYLIC ACID [Concomitant]
     Dosage: DAILY
     Route: 048
  7. BROMOCRIPTINE [Concomitant]
     Dosage: ONE-HALF TABLET B.I.D.
     Route: 048
  8. LEVOTHYROXINE SODIUM [Concomitant]
     Dosage: DAILY
  9. METHOTREXATE [Concomitant]
     Dosage: P.O. WEEKLY
     Route: 048
  10. MODAFINIL [Concomitant]
     Dosage: Q.A.M.
  11. SENNA ALEXANDRINA [Concomitant]
     Dosage: 8.6 MG/50 MG
     Route: 048
  12. MULTI-VITAMIN [Concomitant]
     Route: 048
  13. VENLAFAXINE [Concomitant]
     Route: 048
  14. CLONAZEPAM [Concomitant]
     Dosage: Q.H.S.
  15. FUROSEMIDE [Concomitant]
     Dosage: Q.A.M.
  16. PROVELLA-14 [Concomitant]
     Dosage: 0.625/2.5 MG
     Route: 048
  17. SPIRONOLACTONE [Concomitant]
     Dosage: DAILY
  18. BACLOFEN [Concomitant]
     Route: 048

REACTIONS (1)
  - PNEUMONIA [None]
